FAERS Safety Report 9633033 (Version 1)
Quarter: 2013Q4

REPORT INFORMATION
  Report Type: Spontaneous
  Country: US (occurrence: US)
  Receive Date: 20131018
  Receipt Date: 20131018
  Transmission Date: 20140711
  Serious: No
  Sender: FDA-Public Use
  Company Number: US-009507513-1310USA001897

PATIENT
  Sex: 0
  Weight: 106.58 kg

DRUGS (1)
  1. NEXPLANON [Suspect]
     Dosage: 1 DF/ 1 ROD
     Route: 059
     Dates: start: 20130415

REACTIONS (3)
  - Device kink [Unknown]
  - Device breakage [Unknown]
  - No adverse event [Unknown]
